FAERS Safety Report 9370403 (Version 2)
Quarter: 2013Q3

REPORT INFORMATION
  Report Type: Spontaneous
  Country: JP (occurrence: JP)
  Receive Date: 20130626
  Receipt Date: 20130927
  Transmission Date: 20140515
  Serious: Yes (Other)
  Sender: FDA-Public Use
  Company Number: JP-GALDERMA-JP13001984

PATIENT
  Age: 29 Year
  Sex: Female

DRUGS (1)
  1. ADAPALENE [Suspect]
     Indication: ACNE
     Route: 061
     Dates: end: 20130605

REACTIONS (3)
  - Abortion threatened [Recovered/Resolved]
  - Haemorrhage in pregnancy [Recovered/Resolved]
  - Exposure during pregnancy [Unknown]
